FAERS Safety Report 5707262-9 (Version None)
Quarter: 2008Q2

REPORT INFORMATION
  Report Type: 
  Country: None (occurrence: None)
  Receive Date: 20080416
  Receipt Date: 20080410
  Transmission Date: 20081010
  Serious: Yes (Other)
  Sender: FDA-Public Use
  Company Number: US-PURDUE-USA_2007_0031433

PATIENT
  Sex: Male

DRUGS (4)
  1. OXYCONTIN [Suspect]
     Indication: MUSCULOSKELETAL PAIN
     Dosage: 40 MG, TID
     Dates: start: 20001201, end: 20020201
  2. ALPRAZOLAM [Concomitant]
     Indication: DRUG USE FOR UNKNOWN INDICATION
     Dosage: .05 MG, TID
  3. ZOLOFT [Concomitant]
     Indication: DRUG USE FOR UNKNOWN INDICATION
     Dosage: 25 MG, DAILY
  4. VIOXX [Concomitant]
     Indication: DRUG USE FOR UNKNOWN INDICATION
     Dosage: 25 MG, DAILY

REACTIONS (17)
  - AMNESIA [None]
  - COLD SWEAT [None]
  - CONVULSION [None]
  - DELUSION [None]
  - DRUG DEPENDENCE [None]
  - DYSPNOEA [None]
  - HAEMATEMESIS [None]
  - HAEMORRHAGE [None]
  - HALLUCINATION [None]
  - HYPERHIDROSIS [None]
  - IRRITABILITY [None]
  - MALAISE [None]
  - MOOD SWINGS [None]
  - NAUSEA [None]
  - SOMNOLENCE [None]
  - VISION BLURRED [None]
  - VOMITING [None]
